FAERS Safety Report 7798721-6 (Version None)
Quarter: 2011Q4

REPORT INFORMATION
  Report Type: 
  Country: None (occurrence: None)
  Receive Date: 20111006
  Receipt Date: 20110926
  Transmission Date: 20120403
  Serious: No
  Sender: FDA-Public Use
  Company Number: US-BIOGENIDEC-2011BI036885

PATIENT
  Sex: Male

DRUGS (2)
  1. AVONEX [Suspect]
     Route: 030
     Dates: start: 20030101
  2. AVONEX [Suspect]
     Indication: MULTIPLE SCLEROSIS
     Route: 030
     Dates: start: 20010601, end: 20030101

REACTIONS (5)
  - PALPITATIONS [None]
  - ANXIETY [None]
  - BLOOD POTASSIUM INCREASED [None]
  - LOW DENSITY LIPOPROTEIN INCREASED [None]
  - HYPERTENSION [None]
